FAERS Safety Report 4934041-2 (Version None)
Quarter: 2006Q1

REPORT INFORMATION
  Report Type: 
  Country: None (occurrence: None)
  Receive Date: 20060303
  Receipt Date: 20060221
  Transmission Date: 20060701
  Serious: Yes (Other)
  Sender: FDA-Public Use
  Company Number: 2006026046

PATIENT
  Age: 68 Year
  Sex: Male
  Weight: 71.6683 kg

DRUGS (6)
  1. LIPITOR [Suspect]
     Indication: BLOOD CHOLESTEROL INCREASED
     Dosage: 20 MG (1 IN 1 D), ORAL
     Route: 048
  2. DIAZEPAM [Concomitant]
  3. DIPHENOXYLATE W/ATROPINE SULFATE (ATROPINE SULFATE, DIPHENOXYLATE) [Concomitant]
  4. METOPROLOL (METOPROLOL) [Concomitant]
  5. DOXAZOSIN (DOXAZOSIN) [Concomitant]
  6. LISINOPRIL [Concomitant]

REACTIONS (6)
  - DRY SKIN [None]
  - MUSCLE ATROPHY [None]
  - OEDEMA PERIPHERAL [None]
  - PRURITUS GENERALISED [None]
  - QUADRUPLE VESSEL BYPASS GRAFT [None]
  - RASH GENERALISED [None]
